FAERS Safety Report 7354304-3 (Version None)
Quarter: 2011Q1

REPORT INFORMATION
  Report Type: 
  Country: None (occurrence: None)
  Receive Date: 20110316
  Receipt Date: 20110307
  Transmission Date: 20110831
  Serious: No
  Sender: FDA-Public Use
  Company Number: US-BIOGENIDEC-2011BI008789

PATIENT
  Age: 41 Year
  Sex: Female

DRUGS (1)
  1. AVONEX [Suspect]
     Indication: MULTIPLE SCLEROSIS
     Route: 030
     Dates: start: 20030507

REACTIONS (6)
  - TRANSIENT ISCHAEMIC ATTACK [None]
  - MENTAL IMPAIRMENT [None]
  - YAWNING [None]
  - HEADACHE [None]
  - MUSCULOSKELETAL DISORDER [None]
  - DYSARTHRIA [None]
